FAERS Safety Report 13828896 (Version 1)
Quarter: 2017Q3

REPORT INFORMATION
  Report Type: Spontaneous
  Country: US (occurrence: US)
  Receive Date: 20170802
  Receipt Date: 20170802
  Transmission Date: 20171127
  Serious: Yes (Death, Life-Threatening, Hospitalization)
  Sender: FDA-Public Use
  Company Number: None

PATIENT
  Age: 67 Year
  Sex: Female
  Weight: 81 kg

DRUGS (3)
  1. PLAVIX [Concomitant]
     Active Substance: CLOPIDOGREL BISULFATE
  2. XARELTO [Suspect]
     Active Substance: RIVAROXABAN
     Route: 048
     Dates: start: 20170123, end: 20170124
  3. LOVENOX [Concomitant]
     Active Substance: ENOXAPARIN SODIUM

REACTIONS (10)
  - Chest pain [None]
  - Fibrin D dimer increased [None]
  - Coronary artery stenosis [None]
  - Nausea [None]
  - General physical health deterioration [None]
  - Cerebrovascular accident [None]
  - Unresponsive to stimuli [None]
  - Dyspnoea [None]
  - Pulmonary artery thrombosis [None]
  - Headache [None]

NARRATIVE: CASE EVENT DATE: 20170123
